FAERS Safety Report 9458772 (Version 1)
Quarter: 2013Q3

REPORT INFORMATION
  Report Type: Spontaneous
  Country: US (occurrence: US)
  Receive Date: 20130814
  Receipt Date: 20130814
  Transmission Date: 20140515
  Serious: Yes (Death, Other)
  Sender: FDA-Public Use
  Company Number: US-BRISTOL-MYERS SQUIBB COMPANY-18553651

PATIENT
  Age: 69 Year
  Sex: Male

DRUGS (1)
  1. BYETTA [Suspect]
     Indication: TYPE 2 DIABETES MELLITUS
     Dosage: THERAPY DATES:25OC,23NV,28NV,30JUN06,30SEP06,22MA,30DEC,05APR05,09MAY07,03AUG,10NV,07AP08,25SE
     Dates: start: 20051025, end: 201010

REACTIONS (1)
  - Pancreatic carcinoma metastatic [Fatal]
